FAERS Safety Report 22342496 (Version 4)
Quarter: 2023Q2

REPORT INFORMATION
  Report Type: Report from Study
  Country: US (occurrence: US)
  Receive Date: 20230519
  Receipt Date: 20230628
  Transmission Date: 20230721
  Serious: Yes (Other)
  Sender: FDA-Public Use
  Company Number: US-002147023-NVSC2023US060108

PATIENT
  Sex: Female
  Weight: 81.65 kg

DRUGS (2)
  1. ENTRESTO [Suspect]
     Active Substance: SACUBITRIL\VALSARTAN
     Indication: Product used for unknown indication
     Dosage: 24/26 MG (1 DOSAGE FORM, BID)
     Route: 048
     Dates: start: 20211230, end: 20221012
  2. ENTRESTO [Suspect]
     Active Substance: SACUBITRIL\VALSARTAN
     Dosage: 49/51 MG (1 DOSAGE FORM, BID)
     Route: 048
     Dates: start: 20221012

REACTIONS (5)
  - Coronary artery occlusion [Unknown]
  - Vascular stent stenosis [Unknown]
  - Weight increased [Unknown]
  - Chest pain [Unknown]
  - Vasospasm [Unknown]
